FAERS Safety Report 4850497-8 (Version None)
Quarter: 2005Q4

REPORT INFORMATION
  Report Type: 
  Country: None (occurrence: None)
  Receive Date: 20051125
  Receipt Date: 20050222
  Transmission Date: 20060501
  Serious: Yes (Other)
  Sender: FDA-Public Use
  Company Number: HQWYE764802MAR05

PATIENT
  Age: 60 Year
  Sex: Female
  Weight: 49.49 kg

DRUGS (1)
  1. PREMARIN [Suspect]
     Indication: ATROPHY
     Dosage: TWO DOSES A ^DAB^ EACH TIME, VAGINAL
     Route: 067
     Dates: start: 20041101, end: 20041101

REACTIONS (2)
  - ERYTHEMA [None]
  - VAGINAL BURNING SENSATION [None]
